FAERS Safety Report 16653000 (Version 1)
Quarter: 2019Q3

REPORT INFORMATION
  Report Type: Spontaneous
  Country: GB (occurrence: GB)
  Receive Date: 20190731
  Receipt Date: 20190731
  Transmission Date: 20191004
  Serious: Yes (Life-Threatening, Hospitalization)
  Sender: FDA-Public Use
  Company Number: GB-BAXTER-2019BAX014941

PATIENT
  Sex: Female

DRUGS (1)
  1. BUPIVACAINE-CLARIS 5MG/ML SOLUTION FOR INJECTION [Suspect]
     Active Substance: BUPIVACAINE HYDROCHLORIDE
     Indication: PRODUCT USED FOR UNKNOWN INDICATION
     Route: 042

REACTIONS (11)
  - Euphoric mood [Unknown]
  - Local anaesthetic systemic toxicity [Not Recovered/Not Resolved]
  - Drug dependence [Unknown]
  - Dyspnoea [Unknown]
  - Sluggishness [Unknown]
  - Gait disturbance [Unknown]
  - Dysarthria [Unknown]
  - Coma [Unknown]
  - Mental impairment [Unknown]
  - Intentional overdose [Unknown]
  - Speech disorder [Unknown]
